FAERS Safety Report 6018316-4 (Version None)
Quarter: 2008Q4

REPORT INFORMATION
  Report Type: 
  Country: None (occurrence: None)
  Receive Date: 20081223
  Receipt Date: 20081215
  Transmission Date: 20090506
  Serious: Yes (Death)
  Sender: FDA-Public Use
  Company Number: US-PFIZER INC-2008154977

PATIENT
  Age: 43 Year
  Sex: Male

DRUGS (3)
  1. GLIPIZIDE [Suspect]
  2. METFORMIN HCL [Suspect]
  3. ACETAMINOPHEN [Suspect]

REACTIONS (2)
  - CARDIAC ARREST [None]
  - RESPIRATORY ARREST [None]
